FAERS Safety Report 8613022-1 (Version None)
Quarter: 2012Q3

REPORT INFORMATION
  Report Type: 
  Country: None (occurrence: None)
  Receive Date: 20120822
  Receipt Date: 20120813
  Transmission Date: 20120928
  Serious: Yes (Hospitalization)
  Sender: FDA-Public Use
  Company Number: US-FRI-1000026464

PATIENT
  Sex: Female

DRUGS (23)
  1. CARISOPRODOL [Concomitant]
  2. CRESTOR [Concomitant]
     Dosage: 20 MG
     Route: 048
  3. EFFEXOR [Concomitant]
     Dosage: 75 MG
     Route: 048
  4. ASPIRIN [Concomitant]
     Dosage: 81 MG
     Route: 048
  5. COUMADIN [Concomitant]
  6. ENALAPRIL MALEATE [Concomitant]
  7. EVAMIST [Concomitant]
  8. LASIX [Concomitant]
     Indication: OEDEMA
     Dosage: 20 MG
     Route: 048
  9. LISINOPRIL [Concomitant]
     Dosage: 10 MG
     Route: 048
  10. ZETIA [Concomitant]
     Dosage: 10 MG
     Route: 048
  11. ATACAND [Concomitant]
     Dosage: 16 MG
     Route: 048
  12. SAVELLA [Suspect]
     Indication: FIBROMYALGIA
     Dosage: 125 MG
     Route: 048
     Dates: start: 20111214, end: 20111214
  13. RANEXA [Concomitant]
     Dosage: 2000 MG
     Route: 048
  14. AMIODARONE HCL [Concomitant]
     Dosage: 100 MG
     Route: 048
  15. NEXIUM [Concomitant]
     Dosage: 40 MG
     Route: 048
  16. NITROSTAT [Concomitant]
  17. PROVIGIL [Concomitant]
     Dosage: 200 MG
     Route: 048
  18. SPIRONOLACTONE [Concomitant]
     Dosage: 25 MG
     Route: 048
  19. LEVEMIR [Concomitant]
  20. LORTAB [Concomitant]
  21. COREG CR [Concomitant]
  22. NOVOLOG [Concomitant]
  23. POTASSIUM CHLORIDE [Concomitant]
     Dosage: 20 MEQ
     Route: 048

REACTIONS (7)
  - DYSPNOEA [None]
  - HYPOVOLAEMIA [None]
  - NAUSEA [None]
  - HYPERHIDROSIS [None]
  - BLOOD GLUCOSE INCREASED [None]
  - CHEST DISCOMFORT [None]
  - VOMITING [None]
